FAERS Safety Report 5321666-8 (Version None)
Quarter: 2007Q1

REPORT INFORMATION
  Report Type: 
  Country: None (occurrence: None)
  Receive Date: 20070215
  Receipt Date: 20061023
  Transmission Date: 20070707
  Serious: No
  Sender: FDA-Public Use
  Company Number: 200616276BWH

PATIENT
  Age: 34 Year
  Sex: Male

DRUGS (4)
  1. NEXAVAR [Suspect]
     Indication: RENAL CELL CARCINOMA STAGE UNSPECIFIED
     Dosage: 400 MG, BID, ORAL
     Route: 048
     Dates: start: 20060701
  2. ZOMETA [Concomitant]
  3. NEURONTIN [Concomitant]
  4. ELAVIL [Concomitant]

REACTIONS (1)
  - PIGMENTATION DISORDER [None]
